FAERS Safety Report 18802485 (Version 1)
Quarter: 2021Q1

REPORT INFORMATION
  Report Type: Spontaneous
  Country: CA (occurrence: CA)
  Receive Date: 20210128
  Receipt Date: 20210128
  Transmission Date: 20210419
  Serious: Yes (Other)
  Sender: FDA-Public Use
  Company Number: CA-JNJFOC-20210134794

PATIENT
  Age: 27 Year
  Sex: Female

DRUGS (3)
  1. TOPAMAX [Suspect]
     Active Substance: TOPIRAMATE
     Indication: MIGRAINE
     Route: 048
  2. BOTULINUM TOXIN TYPE A [Suspect]
     Active Substance: BOTULINUM TOXIN TYPE A
     Indication: MIGRAINE
     Route: 065
  3. PROPRANOLOL [Suspect]
     Active Substance: PROPRANOLOL HYDROCHLORIDE
     Indication: MIGRAINE
     Route: 065

REACTIONS (9)
  - Treatment failure [Recovered/Resolved]
  - Migraine [Recovered/Resolved]
  - Drug ineffective [Recovered/Resolved]
  - Suicidal ideation [Recovered/Resolved]
  - Orthostatic hypotension [Recovered/Resolved]
  - Mood altered [Recovered/Resolved]
  - Contraindicated product administered [Recovered/Resolved]
  - Aphasia [Recovered/Resolved]
  - Drug intolerance [Recovered/Resolved]
